FAERS Safety Report 6701876-5 (Version None)
Quarter: 2010Q2

REPORT INFORMATION
  Report Type: 
  Country: None (occurrence: None)
  Receive Date: 20100427
  Receipt Date: 20100412
  Transmission Date: 20101027
  Serious: Yes (Disabling, Other)
  Sender: FDA-Public Use
  Company Number: PERC20100052

PATIENT
  Age: 48 Year
  Sex: Female

DRUGS (3)
  1. PERCOCET [Suspect]
     Indication: FACIAL PAIN
     Dosage: 3 TABLETS, DAILY, ORAL
     Route: 048
     Dates: start: 20090901
  2. PERCOCET [Suspect]
     Indication: SINUS DISORDER
     Dosage: 3 TABLETS, DAILY, ORAL
     Route: 048
     Dates: start: 20090901
  3. SINGULAIR [Suspect]
     Indication: DRUG USE FOR UNKNOWN INDICATION
     Dates: start: 20100101

REACTIONS (6)
  - BEDRIDDEN [None]
  - COUGH [None]
  - DRUG DEPENDENCE [None]
  - DYSPNOEA [None]
  - NASAL CONGESTION [None]
  - RESPIRATORY ARREST [None]
